FAERS Safety Report 19741985 (Version 1)
Quarter: 2021Q3

REPORT INFORMATION
  Report Type: Spontaneous
  Country: US (occurrence: US)
  Receive Date: 20210824
  Receipt Date: 20210824
  Transmission Date: 20211014
  Serious: Yes (Other)
  Sender: FDA-Public Use
  Company Number: US-ASTRAZENECA-2021A692109

PATIENT
  Age: 70 Year
  Sex: Female

DRUGS (36)
  1. SEROQUEL [Suspect]
     Active Substance: QUETIAPINE FUMARATE
     Route: 048
  2. CITOPRAM [Concomitant]
  3. CRANBERRY. [Concomitant]
     Active Substance: CRANBERRY
  4. LANSOPRAZOLE. [Concomitant]
     Active Substance: LANSOPRAZOLE
  5. MULTI VITAMIN [Concomitant]
     Active Substance: VITAMINS
  6. ONDANSETRON [Concomitant]
     Active Substance: ONDANSETRON
  7. TRIMETHOPRIM. [Concomitant]
     Active Substance: TRIMETHOPRIM
  8. AMANTADINE. [Concomitant]
     Active Substance: AMANTADINE HYDROCHLORIDE
  9. CLONAZEPAM. [Concomitant]
     Active Substance: CLONAZEPAM
  10. TOPIRAMATE. [Concomitant]
     Active Substance: TOPIRAMATE
  11. OMEPRAZOLE. [Suspect]
     Active Substance: OMEPRAZOLE
     Route: 065
  12. ASPIRIN. [Concomitant]
     Active Substance: ASPIRIN
  13. LEVODOPA/CARBIDOPA [Concomitant]
     Active Substance: CARBIDOPA\LEVODOPA
  14. ASPIRIN. [Concomitant]
     Active Substance: ASPIRIN
  15. ROPINIROLE. [Concomitant]
     Active Substance: ROPINIROLE
  16. QUETIAPINE. [Concomitant]
     Active Substance: QUETIAPINE
  17. AMPICILLIN [Concomitant]
     Active Substance: AMPICILLIN
  18. ATROPINE. [Concomitant]
     Active Substance: ATROPINE
  19. BACLOFEN. [Concomitant]
     Active Substance: BACLOFEN
  20. MELATONIN [Concomitant]
     Active Substance: MELATONIN
  21. MEMANTINE. [Concomitant]
     Active Substance: MEMANTINE
  22. VITAMIN D3 [Concomitant]
     Active Substance: CHOLECALCIFEROL
  23. MAGNESIUM [Concomitant]
     Active Substance: MAGNESIUM
  24. NUPLAZID [Suspect]
     Active Substance: PIMAVANSERIN TARTRATE
     Indication: PARKINSON^S DISEASE
     Route: 048
     Dates: end: 202107
  25. CIPROFLOXACIN. [Concomitant]
     Active Substance: CIPROFLOXACIN
  26. DONEPEZIL. [Concomitant]
     Active Substance: DONEPEZIL
  27. HYDROCODONE/ACETAMINOPHEN [Concomitant]
     Active Substance: ACETAMINOPHEN\HYDROCODONE
  28. LEVOTHYROXINE. [Concomitant]
     Active Substance: LEVOTHYROXINE
  29. MECLIZINE [Concomitant]
     Active Substance: MECLIZINE HYDROCHLORIDE
  30. ATORVASTATIN [Concomitant]
     Active Substance: ATORVASTATIN
  31. PAROXETINE. [Concomitant]
     Active Substance: PAROXETINE
  32. SINEMET [Concomitant]
     Active Substance: CARBIDOPA\LEVODOPA
  33. SEROQUEL [Suspect]
     Active Substance: QUETIAPINE FUMARATE
     Dosage: QUETIAPINE
     Route: 048
  34. CEPHALEXIN. [Concomitant]
     Active Substance: CEPHALEXIN
  35. NITROFURANTOIN MONOHYDREATE/MACROCRYSTALS [Concomitant]
  36. VITAMIN B12 [Concomitant]
     Active Substance: CYANOCOBALAMIN

REACTIONS (4)
  - Urinary tract infection [Recovered/Resolved]
  - Malaise [Not Recovered/Not Resolved]
  - Bedridden [Not Recovered/Not Resolved]
  - Condition aggravated [Not Recovered/Not Resolved]
